FAERS Safety Report 5727853-9 (Version None)
Quarter: 2008Q2

REPORT INFORMATION
  Report Type: 
  Country: None (occurrence: None)
  Receive Date: 20080430
  Receipt Date: 20080416
  Transmission Date: 20081010
  Serious: Yes (Hospitalization)
  Sender: FDA-Public Use
  Company Number: OPER20080080

PATIENT
  Age: 60 Year
  Sex: Female

DRUGS (1)
  1. OPANA ER [Suspect]
     Indication: PAIN
     Dosage: 20 MG, 1 TABLET BID, PER ORAL
     Route: 048
     Dates: start: 20080331, end: 20080402

REACTIONS (4)
  - CHEST PAIN [None]
  - DRUG PRESCRIBING ERROR [None]
  - NAUSEA [None]
  - VOMITING [None]
